FAERS Safety Report 4399011-4 (Version None)
Quarter: 2004Q3

REPORT INFORMATION
  Report Type: 
  Country: None (occurrence: None)
  Receive Date: 20040712
  Receipt Date: 20040422
  Transmission Date: 20050211
  Serious: Yes (Hospitalization)
  Sender: FDA-Public Use
  Company Number: A03200401263

PATIENT
  Age: 58 Year
  Sex: Male

DRUGS (4)
  1. ARIXTRA [Suspect]
     Indication: KNEE ARTHROPLASTY
     Dosage: 2.5 MG QD - SUBCUTANEOUS
     Route: 058
     Dates: start: 20040323, end: 20040414
  2. ARIXTRA [Suspect]
     Indication: THROMBOSIS PROPHYLAXIS
     Dosage: 2.5 MG QD - SUBCUTANEOUS
     Route: 058
     Dates: start: 20040323, end: 20040414
  3. HYDROCHLOROTHIAZIDE [Concomitant]
  4. CEFAZOLIN [Concomitant]

REACTIONS (19)
  - ANAEMIA [None]
  - BLOOD CREATININE INCREASED [None]
  - BLOOD LACTATE DEHYDROGENASE INCREASED [None]
  - BLOOD UREA INCREASED [None]
  - CONTUSION [None]
  - EPISTAXIS [None]
  - FIBRIN D DIMER INCREASED [None]
  - HYPOTENSION [None]
  - IDIOPATHIC THROMBOCYTOPENIC PURPURA [None]
  - INJECTION SITE HAEMORRHAGE [None]
  - MARROW HYPERPLASIA [None]
  - MEGAKARYOCYTES INCREASED [None]
  - POSTNASAL DRIP [None]
  - PROCEDURAL SITE REACTION [None]
  - PURPURA [None]
  - RED BLOOD CELL SEDIMENTATION RATE INCREASED [None]
  - RED BLOOD CELLS URINE POSITIVE [None]
  - TRANSFUSION REACTION [None]
  - ULCER HAEMORRHAGE [None]
